FAERS Safety Report 6956217-5 (Version None)
Quarter: 2010Q3

REPORT INFORMATION
  Report Type: 
  Country: None (occurrence: None)
  Receive Date: 20100830
  Receipt Date: 20100728
  Transmission Date: 20110219
  Serious: No
  Sender: FDA-Public Use
  Company Number: US-BAYER-201019017BCC

PATIENT
  Age: 83 Year
  Sex: Female
  Weight: 79 kg

DRUGS (7)
  1. ALEVE (CAPLET) [Suspect]
     Indication: PAIN IN EXTREMITY
     Dosage: TOTAL DAILY DOSE: 440 MG  UNIT DOSE: 220 MG
     Route: 048
     Dates: start: 20100714
  2. TEMAZEPAM [Concomitant]
     Route: 065
  3. VYTORIN [Concomitant]
     Route: 065
  4. LOSARTAN POTASSIUM [Concomitant]
     Route: 065
  5. FUROSEMIDE [Concomitant]
     Route: 065
  6. LORCON [Concomitant]
     Route: 065
  7. ATENOLOL [Concomitant]
     Route: 065

REACTIONS (1)
  - CONSTIPATION [None]
